FAERS Safety Report 20317184 (Version 1)
Quarter: 2022Q1

REPORT INFORMATION
  Report Type: Report from Study
  Country: CN (occurrence: None)
  Receive Date: 20220110
  Receipt Date: 20220110
  Transmission Date: 20220423
  Serious: Yes (Hospitalization)
  Sender: FDA-Public Use
  Company Number: 2021A655774

PATIENT
  Age: 27779 Day
  Sex: Female

DRUGS (47)
  1. DURVALUMAB [Suspect]
     Active Substance: DURVALUMAB
     Indication: Bile duct cancer
     Route: 042
     Dates: start: 20210723, end: 20210723
  2. CISPLATIN [Suspect]
     Active Substance: CISPLATIN
     Indication: Bile duct cancer
     Dosage: 25 MG/M2 (EACH ADMINISTERED ON DAYS 1 AND 8 Q3W) UP TO 8 CYCLES
     Route: 042
     Dates: start: 20210723, end: 20210723
  3. GEMCITABINE [Suspect]
     Active Substance: GEMCITABINE
     Indication: Bile duct cancer
     Dosage: 1000 MG/M2 (EACH ADMINISTERED ON DAYS 1 AND 8 Q3W) UP TO 8 CYCLES
     Route: 042
     Dates: start: 20210723, end: 20210723
  4. VALSARTAN AND AMLODIPINE TABLETS [Concomitant]
     Indication: Hypertension
     Route: 048
     Dates: start: 2011, end: 202107
  5. VALSARTAN HYDROCHLOROTHIAZIDE TABLETS [Concomitant]
     Indication: Hypertension
     Dosage: 1.0DF ONCE/SINGLE ADMINISTRATION
     Route: 048
     Dates: start: 20210704, end: 20210705
  6. PARECOXIBNA FOR INJECTION [Concomitant]
     Indication: Postoperative analgesia
     Dosage: 40.00 MG ST
     Route: 042
     Dates: start: 20210710, end: 20210710
  7. AMLODIPINE [Concomitant]
     Active Substance: AMLODIPINE BESYLATE
     Indication: Hypertension
     Dosage: 1.0DF ONCE/SINGLE ADMINISTRATION
     Route: 048
     Dates: start: 20210704, end: 20210705
  8. GLYCERINE ENEMA [Concomitant]
     Indication: Constipation
     Dosage: 40.00 ML ST
     Route: 054
     Dates: start: 20210706, end: 20210706
  9. LACTULOSE [Concomitant]
     Active Substance: LACTULOSE
     Indication: Constipation
     Dosage: 30.0ML ONCE/SINGLE ADMINISTRATION
     Route: 048
     Dates: start: 20210706, end: 20210706
  10. LACTULOSE [Concomitant]
     Active Substance: LACTULOSE
     Indication: Constipation
     Dosage: 15.0ML ONCE/SINGLE ADMINISTRATION
     Route: 048
     Dates: start: 20210715, end: 20210729
  11. POTASSIUM CHLORIDE ORAL LIQUID [Concomitant]
     Indication: Hypokalaemia
     Dosage: 10.0ML ONCE/SINGLE ADMINISTRATION
     Route: 048
     Dates: start: 20210707, end: 20210707
  12. DEZOCINE [Concomitant]
     Active Substance: DEZOCINE
     Indication: Analgesic therapy
     Dosage: 5.00 MG ST TWICE
     Route: 030
     Dates: start: 20210702, end: 20210702
  13. DEZOCINE [Concomitant]
     Active Substance: DEZOCINE
     Indication: Analgesic therapy
     Dosage: 5.00 MG ST TWICE
     Route: 030
     Dates: start: 20210703, end: 20210703
  14. DEZOCINE [Concomitant]
     Active Substance: DEZOCINE
     Indication: Analgesic therapy
     Dosage: 5.00 MG ST
     Route: 030
     Dates: start: 20210705, end: 20210707
  15. DEZOCINE [Concomitant]
     Active Substance: DEZOCINE
     Indication: Analgesic therapy
     Dosage: 5.00 MG ST
     Route: 030
     Dates: start: 20210709, end: 20210713
  16. DEZOCINE [Concomitant]
     Active Substance: DEZOCINE
     Indication: Analgesic therapy
     Dosage: 5.00 MG ST
     Route: 030
     Dates: start: 20210729, end: 20210729
  17. FUROSEMIDE [Concomitant]
     Active Substance: FUROSEMIDE
     Indication: Job change
     Route: 048
     Dates: start: 20210715, end: 20210724
  18. OMEPRAZOLE SODIUM FOR INJECTION [Concomitant]
     Indication: Gastric disorder
     Route: 042
     Dates: start: 20210714, end: 20210810
  19. FOSAPITANT DIMEGLUMINE FOR INJECTION [Concomitant]
     Indication: Antiemetic supportive care
     Dosage: 0.15G ONCE/SINGLE ADMINISTRATION
     Route: 042
     Dates: start: 20210723, end: 20210723
  20. PALONOSETRON HYDROCHLORIDE [Concomitant]
     Active Substance: PALONOSETRON HYDROCHLORIDE
     Indication: Antiemetic supportive care
     Dosage: 0.25MG ONCE/SINGLE ADMINISTRATION
     Route: 042
     Dates: start: 20210723, end: 20210723
  21. LONG-CHAIN FAT EMULSION INJECTION [Concomitant]
     Indication: Nutritional supplementation
     Route: 042
     Dates: start: 20210714, end: 20210819
  22. RECOMBINANT HUMAN INSULIN INJECTION [Concomitant]
     Indication: Blood glucose
     Route: 042
     Dates: start: 20210714, end: 20210819
  23. RECOMBINANT HUMAN INSULIN INJECTION [Concomitant]
     Indication: Oedema
     Route: 042
     Dates: start: 20210714, end: 20210819
  24. RECOMBINANT HUMAN INSULIN INJECTION [Concomitant]
     Indication: Blood glucose
     Dosage: 4.0IU ONCE/SINGLE ADMINISTRATION
     Route: 042
     Dates: start: 20210728, end: 20210728
  25. RECOMBINANT HUMAN INSULIN INJECTION [Concomitant]
     Indication: Oedema
     Dosage: 4.0IU ONCE/SINGLE ADMINISTRATION
     Route: 042
     Dates: start: 20210728, end: 20210728
  26. RECOMBINANT HUMAN INSULIN INJECTION [Concomitant]
     Indication: Blood glucose
     Dosage: 5.0IU ONCE/SINGLE ADMINISTRATION
     Route: 042
     Dates: start: 20210728, end: 20210728
  27. RECOMBINANT HUMAN INSULIN INJECTION [Concomitant]
     Indication: Oedema
     Dosage: 5.0IU ONCE/SINGLE ADMINISTRATION
     Route: 042
     Dates: start: 20210728, end: 20210728
  28. OXYCODONE SUSTAINED-RELEASE TABLETS [Concomitant]
     Indication: Analgesic therapy
     Route: 048
     Dates: start: 20210714, end: 20210728
  29. SPIRONOLACTONE [Concomitant]
     Active Substance: SPIRONOLACTONE
     Indication: Job change
     Route: 048
     Dates: start: 20210715, end: 20210728
  30. COMPOUND LICORICE ORAL SOLUTION [Concomitant]
     Indication: Cough
     Dosage: 1.0ML ONCE/SINGLE ADMINISTRATION
     Route: 048
     Dates: start: 20210715, end: 20210715
  31. TRIAMCINOLONE ACETONIDE AND ECONAZOLE CREAM [Concomitant]
     Indication: Rash
     Dosage: 0.50 G ST
     Route: 003
     Dates: start: 20210716, end: 20210716
  32. LORATADINE [Concomitant]
     Active Substance: LORATADINE
     Indication: Rash
     Dosage: 1.00 DF ST
     Route: 048
     Dates: start: 20210717, end: 20210717
  33. MEGESTROL ACETATE DISPERSIBLE TABLETS [Concomitant]
     Indication: Increased appetite
     Route: 048
     Dates: start: 20210719, end: 20210728
  34. GLYCERIN ENEMA [Concomitant]
     Indication: Constipation
     Dosage: 110.00 ML ST
     Route: 054
     Dates: start: 20210719, end: 20210719
  35. GLYCERIN ENEMA [Concomitant]
     Indication: Constipation
     Dosage: 20.0ML ONCE/SINGLE ADMINISTRATION
     Route: 054
     Dates: start: 20210721, end: 20210721
  36. POTASSIUM CHLORIDE [Concomitant]
     Active Substance: POTASSIUM CHLORIDE
     Indication: Hypokalaemia
     Route: 042
     Dates: start: 20210714
  37. FAT-SOLUBLE VITAMINS/WATER-SOLUBLE VITAMINS [Concomitant]
     Indication: Nutritional supplementation
     Dosage: UNKNOWN
     Route: 048
     Dates: start: 20210714
  38. MULTIPLE TRACE ELEMENT INJECTION [Concomitant]
     Indication: Nutritional supplementation
     Route: 042
     Dates: start: 20210714
  39. NOREPINEPHRINE BITARTRATE [Concomitant]
     Active Substance: NOREPINEPHRINE BITARTRATE
     Indication: Blood pressure increased
     Dosage: 4.00 MG ST TWICE
     Route: 042
     Dates: start: 20210728, end: 20210728
  40. NOREPINEPHRINE BITARTRATE [Concomitant]
     Active Substance: NOREPINEPHRINE BITARTRATE
     Indication: Blood pressure increased
     Dosage: 4.00 MG ST TWICE
     Route: 042
     Dates: start: 20210729, end: 20210729
  41. FUROSEMIDE [Concomitant]
     Active Substance: FUROSEMIDE
     Indication: Blood pressure increased
     Dosage: 10.0MG ONCE/SINGLE ADMINISTRATION
     Route: 042
     Dates: start: 20210728, end: 20210728
  42. ORNITHINE ASPARTATE INJECTION [Concomitant]
     Indication: Hepatic encephalopathy
     Dosage: 10.00 G ST
     Route: 042
     Dates: start: 20210728, end: 20210728
  43. 5% SODIUM BICARBONATE INJECTION [Concomitant]
     Indication: Acidosis
     Dosage: 125.00 ML ST
     Route: 042
     Dates: start: 20210728, end: 20210728
  44. SODIUM CHLORIDE [Concomitant]
     Active Substance: SODIUM CHLORIDE
     Indication: Hyponatraemia
     Dosage: 500.0ML ONCE/SINGLE ADMINISTRATION
     Route: 042
     Dates: start: 20210728, end: 20210728
  45. 10% CONCENTRATED SODIUM CHLORIDE INJECTION [Concomitant]
     Indication: Hyponatraemia
     Dosage: 40.00 ML ST
     Route: 042
     Dates: start: 20210728, end: 20210728
  46. METHYLPREDNISOLONE SODIUM SUCCINATE [Concomitant]
     Active Substance: METHYLPREDNISOLONE SODIUM SUCCINATE
     Indication: Pneumonia
     Dosage: 40.00 MG ST
     Route: 042
     Dates: start: 20210802, end: 20210802
  47. METHYLPREDNISOLONE SODIUM SUCCINATE [Concomitant]
     Active Substance: METHYLPREDNISOLONE SODIUM SUCCINATE
     Indication: Pneumonia
     Route: 042
     Dates: start: 20210802, end: 20210804

REACTIONS (1)
  - Immune-mediated lung disease [Not Recovered/Not Resolved]

NARRATIVE: CASE EVENT DATE: 20210728
